FAERS Safety Report 18112740 (Version 1)
Quarter: 2020Q3

REPORT INFORMATION
  Report Type: Spontaneous
  Country: US (occurrence: US)
  Receive Date: 20200804
  Receipt Date: 20200804
  Transmission Date: 20201103
  Serious: Yes (Hospitalization)
  Sender: FDA-Public Use
  Company Number: None

PATIENT
  Age: 59 Year
  Sex: Female
  Weight: 66.47 kg

DRUGS (6)
  1. FLONASE [Concomitant]
     Active Substance: FLUTICASONE PROPIONATE
  2. LISINOPRIL?HCTZ [Concomitant]
     Active Substance: HYDROCHLOROTHIAZIDE\LISINOPRIL
  3. ALPRAZOLAM. [Concomitant]
     Active Substance: ALPRAZOLAM
  4. IBUPROFEN. [Concomitant]
     Active Substance: IBUPROFEN
  5. CAPECITABINE. [Suspect]
     Active Substance: CAPECITABINE
     Indication: BILIARY NEOPLASM
     Route: 048
     Dates: start: 20200617
  6. LEVOTHYROXINE. [Concomitant]
     Active Substance: LEVOTHYROXINE

REACTIONS (2)
  - Diarrhoea [None]
  - Dehydration [None]
